FAERS Safety Report 7644753-8 (Version None)
Quarter: 2011Q3

REPORT INFORMATION
  Report Type: 
  Country: None (occurrence: None)
  Receive Date: 20110729
  Receipt Date: 20110714
  Transmission Date: 20111222
  Serious: Yes (Other)
  Sender: FDA-Public Use
  Company Number: GB-BAUSCH-2011BL004687

PATIENT
  Age: 51 Year
  Sex: Female

DRUGS (8)
  1. BETAMETHASONE [Suspect]
     Indication: CYTOMEGALOVIRUS CHORIORETINITIS
     Route: 047
  2. ATAZANAVIR [Concomitant]
     Indication: HIV INFECTION
  3. DEXAMETHASONE [Suspect]
     Indication: CYTOMEGALOVIRUS CHORIORETINITIS
     Route: 047
  4. RITONAVIR [Suspect]
     Indication: HIV INFECTION
  5. EMTRICITABINE [Concomitant]
     Indication: HIV INFECTION
  6. TENOFOVIR DISOPROXIL FUMARATE [Concomitant]
     Indication: HIV INFECTION
  7. PREDNISOLONE [Concomitant]
  8. METHYLPREDNISOLONE [Concomitant]

REACTIONS (6)
  - CUSHING'S SYNDROME [None]
  - ADRENAL SUPPRESSION [None]
  - DRUG INTERACTION [None]
  - ACTH STIMULATION TEST ABNORMAL [None]
  - BLOOD CORTICOTROPHIN DECREASED [None]
  - OSTEONECROSIS [None]
